FAERS Safety Report 16173792 (Version 3)
Quarter: 2019Q2

REPORT INFORMATION
  Report Type: Report from Study
  Country: US (occurrence: US)
  Receive Date: 20190409
  Receipt Date: 20190521
  Transmission Date: 20190711
  Serious: Yes (Hospitalization)
  Sender: FDA-Public Use
  Company Number: US-TEVA-2019-US-1035430

PATIENT
  Age: 38 Year
  Sex: Male

DRUGS (39)
  1. CEFEPIME [Concomitant]
     Active Substance: CEFEPIME HYDROCHLORIDE
     Dates: start: 20190227, end: 20190302
  2. ALLEGRA [Concomitant]
     Active Substance: FEXOFENADINE HYDROCHLORIDE
     Dates: start: 20190119
  3. PROCHLORPERAZINE MALEATE. [Concomitant]
     Active Substance: PROCHLORPERAZINE MALEATE
     Dates: start: 2016
  4. TUMS [Concomitant]
     Active Substance: CALCIUM CARBONATE
     Dates: start: 20190207
  5. HYDROMORPHONE HCL [Concomitant]
     Active Substance: HYDROMORPHONE HYDROCHLORIDE
     Dates: start: 20190225, end: 20190225
  6. IMODIUM [Concomitant]
     Active Substance: LOPERAMIDE HYDROCHLORIDE
     Dates: start: 20181128
  7. DEXAMETHASONE. [Concomitant]
     Active Substance: DEXAMETHASONE
     Dates: start: 20181128
  8. EMEND [Concomitant]
     Active Substance: APREPITANT
     Dates: start: 20181128
  9. BEVACIZUMAB. [Suspect]
     Active Substance: BEVACIZUMAB
     Dosage: 438 MILLIGRAM DAILY; FORTNIGHTY
     Route: 042
     Dates: start: 20190327
  10. ALOXI [Concomitant]
     Active Substance: PALONOSETRON HYDROCHLORIDE
     Dates: start: 20181128
  11. 5-FLUOROURACIL [Suspect]
     Active Substance: FLUOROURACIL
     Dosage: 4776 MILLIGRAM DAILY; FORTNIGHTY
     Route: 042
     Dates: start: 20181128, end: 20190306
  12. AMLODIPINE [Concomitant]
     Active Substance: AMLODIPINE BESYLATE
     Dates: start: 2016
  13. HYDRALAZINE [Concomitant]
     Active Substance: HYDRALAZINE HYDROCHLORIDE
     Dates: start: 2017
  14. PROMETHAZINE [Concomitant]
     Active Substance: PROMETHAZINE\PROMETHAZINE HYDROCHLORIDE
     Dates: start: 2017
  15. HEPARIN FLUSH [Concomitant]
     Active Substance: HEPARIN SODIUM
     Dates: start: 20190226, end: 20190226
  16. PROTONIX [Concomitant]
     Active Substance: PANTOPRAZOLE SODIUM
     Dates: start: 20190214
  17. PEPCID [Concomitant]
     Active Substance: FAMOTIDINE
     Dates: start: 20181128
  18. NORMAL SALINE [Concomitant]
     Active Substance: SODIUM CHLORIDE
     Dates: start: 20181107
  19. SEROQUEL [Concomitant]
     Active Substance: QUETIAPINE FUMARATE
     Dates: start: 2017
  20. SODIUM CHLORIDE. [Concomitant]
     Active Substance: SODIUM CHLORIDE
     Dates: start: 20190225, end: 20190226
  21. ONDANSETRON HCL [Concomitant]
     Active Substance: ONDANSETRON HYDROCHLORIDE
     Dates: start: 20190225, end: 20190225
  22. LEUCOVORIN. [Suspect]
     Active Substance: LEUCOVORIN
     Dosage: 796 MILLIGRAM DAILY; FORTNIGHTY
     Route: 042
     Dates: start: 20190327
  23. ADVIL [Concomitant]
     Active Substance: IBUPROFEN
     Dates: start: 2016
  24. LIDOCAINE. [Concomitant]
     Active Substance: LIDOCAINE
     Dates: start: 2016
  25. CEFTRIAXONE SODIUM. [Concomitant]
     Active Substance: CEFTRIAXONE SODIUM
     Dates: start: 20190225, end: 20190225
  26. LOMOTIL [Concomitant]
     Active Substance: ATROPINE SULFATE\DIPHENOXYLATE HYDROCHLORIDE
     Dates: start: 20181128
  27. FENTANYL. [Concomitant]
     Active Substance: FENTANYL
     Dates: start: 20190116
  28. IRINOTECAN [Suspect]
     Active Substance: IRINOTECAN
     Indication: COLORECTAL CANCER METASTATIC
     Dosage: 298 MILLIGRAM DAILY; FORTNIGHT
     Route: 042
     Dates: start: 20190327
  29. IRINOTECAN [Suspect]
     Active Substance: IRINOTECAN
     Dosage: 300 MILLIGRAM DAILY; FORTNIGHT
     Route: 042
     Dates: start: 20181128, end: 20190306
  30. OXYCODONE [Concomitant]
     Active Substance: OXYCODONE
     Dates: start: 2016
  31. NEUPOGEN [Concomitant]
     Active Substance: FILGRASTIM
     Dates: start: 20190211, end: 20190211
  32. MORPHINE SULFATE. [Concomitant]
     Active Substance: MORPHINE SULFATE
     Dates: start: 20190225, end: 20190225
  33. BENADRYL [Concomitant]
     Active Substance: DIPHENHYDRAMINE HYDROCHLORIDE
     Dates: start: 20190116
  34. 5-FLUOROURACIL [Suspect]
     Active Substance: FLUOROURACIL
     Indication: COLORECTAL CANCER METASTATIC
     Dosage: 795 MILLIGRAM DAILY; FORTNIGHTY
     Route: 040
     Dates: start: 20190327
  35. 5-FLUOROURACIL [Suspect]
     Active Substance: FLUOROURACIL
     Dosage: 4776 MILLIGRAM DAILY; FORTNIGHTY
     Route: 042
     Dates: start: 20190327
  36. LEUCOVORIN. [Suspect]
     Active Substance: LEUCOVORIN
     Indication: COLORECTAL CANCER METASTATIC
     Dosage: 796 MILLIGRAM DAILY; FORTNIGHTY
     Route: 042
     Dates: start: 20181128, end: 20190306
  37. BEVACIZUMAB. [Suspect]
     Active Substance: BEVACIZUMAB
     Indication: COLORECTAL CANCER METASTATIC
     Dosage: 439 MILLIGRAM DAILY; FORTNIGHTY
     Route: 042
     Dates: start: 20181128, end: 20190213
  38. NAPABUCASIN [Suspect]
     Active Substance: NAPABUCASIN
     Route: 065
  39. LEVOFLOXACIN. [Concomitant]
     Active Substance: LEVOFLOXACIN
     Dates: start: 20190303, end: 20190304

REACTIONS (1)
  - Pneumonia [Recovered/Resolved]

NARRATIVE: CASE EVENT DATE: 20190319
